FAERS Safety Report 8387680-3 (Version None)
Quarter: 2012Q2

REPORT INFORMATION
  Report Type: 
  Country: None (occurrence: None)
  Receive Date: 20120525
  Receipt Date: 20120522
  Transmission Date: 20120825
  Serious: No
  Sender: FDA-Public Use
  Company Number: US-PFIZER INC-2012124126

PATIENT
  Sex: Female
  Weight: 65.306 kg

DRUGS (6)
  1. LYRICA [Suspect]
     Indication: FIBROMYALGIA
     Dosage: 75 MG, 2X/DAY
     Route: 048
     Dates: start: 20120501
  2. XANAX [Concomitant]
     Indication: NERVOUS SYSTEM DISORDER
     Dosage: 0.5 MG, 3X/DAY
  3. PROVIGIL [Concomitant]
     Indication: DEPRESSED LEVEL OF CONSCIOUSNESS
     Dosage: 200 MG, 1X/DAY
  4. XANAX [Concomitant]
     Indication: PANIC ATTACK
  5. XANAX [Concomitant]
     Indication: ANXIETY
  6. HYDROCODONE BITARTRATE + ACETAMINOPHEN [Concomitant]
     Indication: FIBROMYALGIA
     Dosage: 5/325 MG, 3X/DAY

REACTIONS (5)
  - EUPHORIC MOOD [None]
  - DISTURBANCE IN ATTENTION [None]
  - FEELING ABNORMAL [None]
  - VISION BLURRED [None]
  - DIZZINESS [None]
